FAERS Safety Report 15108622 (Version 14)
Quarter: 2021Q2

REPORT INFORMATION
  Report Type: Report from Study
  Country: None (occurrence: NL)
  Receive Date: 20180705
  Receipt Date: 20210622
  Transmission Date: 20210716
  Serious: Yes (Hospitalization, Other)
  Sender: FDA-Public Use
  Company Number: NL-ABBVIE-17K-114-2109173-00

PATIENT
  Age: 71 Year
  Sex: Female
  Weight: 41 kg

DRUGS (14)
  1. TERRACORTIL [Concomitant]
     Indication: STOMA SITE REACTION
  2. DUODOPA [Suspect]
     Active Substance: CARBIDOPA\LEVODOPA
     Dosage: MD: 4.5, CD: 3.2, ED: 2
     Route: 050
  3. DUODOPA [Suspect]
     Active Substance: CARBIDOPA\LEVODOPA
     Dosage: MD 5.0, CD 3.4, ED 2.
     Route: 050
     Dates: start: 2017, end: 2017
  4. DUODOPA [Suspect]
     Active Substance: CARBIDOPA\LEVODOPA
     Dosage: MD: 1.2, CD: 2.9, ED: 1.5, CND: 1.4 24 HOUR ADMINISTRATION
     Route: 050
  5. DUODOPA [Suspect]
     Active Substance: CARBIDOPA\LEVODOPA
     Dosage: REMAINS AT 16 HOURS?MD: 1.7ML, CD: 2.9ML/H, ED: 1.5ML
     Route: 050
  6. DUODOPA [Suspect]
     Active Substance: CARBIDOPA\LEVODOPA
     Dosage: MD 5.0, CD 3.4, ED 2.
     Route: 050
     Dates: start: 2017
  7. DUODOPA [Suspect]
     Active Substance: CARBIDOPA\LEVODOPA
     Dosage: CONTINUOUS DOSE DAY: 2.9 CONTINUOUS DOSE NIGHT 1.6 EXTRA DOSE 1.2
     Route: 050
  8. DUODOPA [Suspect]
     Active Substance: CARBIDOPA\LEVODOPA
     Dosage: MD: 0.2, CD: 2.9, ED: 1.5, CND: 1.6; 24 HOUR ADMINISTRATION
     Route: 050
  9. MOVICOLON [Concomitant]
     Active Substance: POLYETHYLENE GLYCOL 3350\POTASSIUM CHLORIDE\SODIUM BICARBONATE\SODIUM CHLORIDE
     Indication: ABNORMAL FAECES
     Dosage: DAILY
     Route: 065
  10. DUODOPA [Suspect]
     Active Substance: CARBIDOPA\LEVODOPA
     Indication: PARKINSON^S DISEASE
     Dosage: MORNING DOSE: 7.8, CONTINUOUS DOSE: 3.8, EXTRA DOSE: 2.0
     Route: 050
     Dates: start: 20170911
  11. DUODOPA [Suspect]
     Active Substance: CARBIDOPA\LEVODOPA
     Dosage: MORNING DOSE: 7.3, CONTINUOUS DOSE: 3.8, EXTRA DOSE: 2.0
     Route: 050
     Dates: end: 2017
  12. DUODOPA [Suspect]
     Active Substance: CARBIDOPA\LEVODOPA
     Dosage: REMAINS AT 24 HOURS?MD: 0.7ML, CD: 2.9ML/H, ED: 1.5ML, CND: 1.6M/H
     Route: 050
  13. MACROGOL [Concomitant]
     Active Substance: POLYETHYLENE GLYCOLS
     Indication: PRODUCT USED FOR UNKNOWN INDICATION
  14. DUPHALAC [Concomitant]
     Active Substance: LACTULOSE
     Indication: ABNORMAL FAECES
     Dosage: DAILY

REACTIONS (69)
  - Balance disorder [Not Recovered/Not Resolved]
  - Reduced facial expression [Not Recovered/Not Resolved]
  - Hallucination [Recovered/Resolved]
  - Orthostatic hypertension [Not Recovered/Not Resolved]
  - Affect lability [Not Recovered/Not Resolved]
  - Depressed mood [Unknown]
  - Initial insomnia [Unknown]
  - On and off phenomenon [Not Recovered/Not Resolved]
  - Extra dose administered [Recovered/Resolved]
  - Sleep disorder [Recovered/Resolved]
  - Fibroma [Not Recovered/Not Resolved]
  - Muscle rigidity [Not Recovered/Not Resolved]
  - Abnormal dreams [Not Recovered/Not Resolved]
  - Tremor [Not Recovered/Not Resolved]
  - Fatigue [Not Recovered/Not Resolved]
  - On and off phenomenon [Recovered/Resolved]
  - Constipation [Recovered/Resolved]
  - Somnolence [Not Recovered/Not Resolved]
  - Dystonia [Not Recovered/Not Resolved]
  - Thinking abnormal [Not Recovered/Not Resolved]
  - Tension [Not Recovered/Not Resolved]
  - Bowel movement irregularity [Unknown]
  - Gait disturbance [Not Recovered/Not Resolved]
  - On and off phenomenon [Recovered/Resolved]
  - Freezing phenomenon [Not Recovered/Not Resolved]
  - Dyskinesia [Recovered/Resolved]
  - Hyperkinesia [Not Recovered/Not Resolved]
  - Wheelchair user [Not Recovered/Not Resolved]
  - On and off phenomenon [Recovering/Resolving]
  - Contusion [Not Recovered/Not Resolved]
  - Mood swings [Not Recovered/Not Resolved]
  - Device alarm issue [Unknown]
  - Wrong technique in product usage process [Unknown]
  - Stress [Not Recovered/Not Resolved]
  - Decreased appetite [Not Recovered/Not Resolved]
  - Weight decreased [Recovered/Resolved]
  - Disorientation [Not Recovered/Not Resolved]
  - Unevaluable event [Recovered/Resolved]
  - Sleep disorder [Recovered/Resolved]
  - Stoma site irritation [Not Recovered/Not Resolved]
  - Intentional dose omission [Not Recovered/Not Resolved]
  - Osteoarthritis [Not Recovered/Not Resolved]
  - General physical health deterioration [Not Recovered/Not Resolved]
  - Skin abrasion [Not Recovered/Not Resolved]
  - Emotional disorder [Not Recovered/Not Resolved]
  - Mobility decreased [Not Recovered/Not Resolved]
  - Tardive dyskinesia [Unknown]
  - Stoma site erythema [Not Recovered/Not Resolved]
  - Therapeutic product effect variable [Not Recovered/Not Resolved]
  - Muscle spasms [Not Recovered/Not Resolved]
  - Hallucination [Not Recovered/Not Resolved]
  - Fall [Unknown]
  - Abnormal faeces [Recovered/Resolved]
  - Agitation [Unknown]
  - Device dislocation [Not Recovered/Not Resolved]
  - Middle insomnia [Not Recovered/Not Resolved]
  - Hypophagia [Not Recovered/Not Resolved]
  - Restlessness [Recovered/Resolved]
  - Fibroma [Recovered/Resolved]
  - Cognitive disorder [Not Recovered/Not Resolved]
  - Purulence [Recovered/Resolved]
  - Urinary incontinence [Not Recovered/Not Resolved]
  - Fall [Recovered/Resolved]
  - Fall [Recovered/Resolved]
  - Bradykinesia [Not Recovered/Not Resolved]
  - Stoma site discharge [Not Recovered/Not Resolved]
  - Rib fracture [Not Recovered/Not Resolved]
  - Nocturia [Not Recovered/Not Resolved]
  - Dyskinesia [Not Recovered/Not Resolved]

NARRATIVE: CASE EVENT DATE: 2017
